FAERS Safety Report 9556333 (Version 1)
Quarter: 2013Q3

REPORT INFORMATION
  Report Type: Spontaneous
  Country: GB (occurrence: GB)
  Receive Date: 20130926
  Receipt Date: 20130926
  Transmission Date: 20140515
  Serious: Yes (Hospitalization, Other)
  Sender: FDA-Public Use
  Company Number: GB-VERTEX PHARMACEUTICALS INC-2013-009905

PATIENT
  Sex: Female

DRUGS (5)
  1. INCIVO [Suspect]
     Indication: HEPATITIS C
     Dosage: 750 MG, TID
     Route: 048
     Dates: start: 20120821, end: 20121113
  2. PEGASYS [Suspect]
     Indication: HEPATITIS C
     Dosage: DOSAGE FORM: UNKNOWN
     Route: 065
  3. RIBAVIRIN [Suspect]
     Indication: HEPATITIS C
     Dosage: 600 MG, UNK
     Route: 065
     Dates: start: 20120821
  4. RIBAVIRIN [Suspect]
     Dosage: 600 MG, QD
     Route: 065
  5. RIBAVIRIN [Suspect]
     Dosage: 600 MG, UNK
     Route: 065

REACTIONS (4)
  - Anaemia [Unknown]
  - Pruritus [Unknown]
  - Rash [Recovered/Resolved]
  - Malaise [Unknown]
